FAERS Safety Report 7805239-0 (Version None)
Quarter: 2011Q4

REPORT INFORMATION
  Report Type: 
  Country: None (occurrence: None)
  Receive Date: 20111010
  Receipt Date: 20110927
  Transmission Date: 20120403
  Serious: No
  Sender: FDA-Public Use
  Company Number: US-ELI_LILLY_AND_COMPANY-US201110000290

PATIENT
  Age: 39 Year
  Sex: Male

DRUGS (3)
  1. CYMBALTA [Suspect]
     Dosage: 30 MG, UNKNOWN
  2. COUMADIN [Concomitant]
     Dosage: UNK
  3. CYMBALTA [Suspect]
     Dosage: 60 MG, UNKNOWN

REACTIONS (1)
  - INTERNATIONAL NORMALISED RATIO INCREASED [None]
